FAERS Safety Report 5668975-0 (Version None)
Quarter: 2008Q1

REPORT INFORMATION
  Report Type: 
  Country: None (occurrence: None)
  Receive Date: 20080226
  Receipt Date: 20070315
  Transmission Date: 20080703
  Serious: Yes (Other)
  Sender: FDA-Public Use
  Company Number: 488052

PATIENT
  Age: 29 Year
  Sex: Female
  Weight: 70.3 kg

DRUGS (1)
  1. ACCUTANE [Suspect]
     Indication: ACNE
     Dosage: 40 MG 1 PER 2 DAY ORAL
     Route: 048
     Dates: start: 20060918, end: 20061211

REACTIONS (1)
  - DEPRESSION [None]
